FAERS Safety Report 21512180 (Version 1)
Quarter: 2022Q4

REPORT INFORMATION
  Report Type: Spontaneous
  Country: CN (occurrence: CN)
  Receive Date: 20221027
  Receipt Date: 20221027
  Transmission Date: 20230113
  Serious: Yes (Other)
  Sender: FDA-Public Use
  Company Number: CN-ABBVIE-4174204

PATIENT
  Age: 59 Year
  Sex: Male
  Weight: 76 kg

DRUGS (3)
  1. VENETOCLAX [Suspect]
     Active Substance: VENETOCLAX
     Indication: Acute myeloid leukaemia
     Dosage: 200 MILLIGRAM
     Route: 048
     Dates: start: 20220410, end: 20220423
  2. TUCIDINOSTAT [Suspect]
     Active Substance: TUCIDINOSTAT
     Indication: Acute myeloid leukaemia
     Dosage: 30 MILLIGRAM
     Route: 048
     Dates: start: 20220410, end: 20220420
  3. AZACITIDINE [Suspect]
     Active Substance: AZACITIDINE
     Indication: Acute myeloid leukaemia
     Dosage: 100 MILLIGRAM
     Route: 058
     Dates: start: 20220410, end: 20220416

REACTIONS (1)
  - Myelosuppression [Recovering/Resolving]

NARRATIVE: CASE EVENT DATE: 20220413
